FAERS Safety Report 8566836-0 (Version None)
Quarter: 2012Q3

REPORT INFORMATION
  Report Type: 
  Country: None (occurrence: None)
  Receive Date: 20120803
  Receipt Date: 20110804
  Transmission Date: 20120928
  Serious: No
  Sender: FDA-Public Use
  Company Number: US-ABBOTT-11P-163-0844090-00

PATIENT
  Sex: Female
  Weight: 145.28 kg

DRUGS (7)
  1. DESACER [Concomitant]
     Indication: PRODUCT USED FOR UNKNOWN INDICATION
  2. NIASPAN [Suspect]
     Indication: BLOOD CHOLESTEROL INCREASED
     Dosage: AT BEDTIME
     Dates: start: 20110718, end: 20110728
  3. CRESTOR [Concomitant]
     Indication: PRODUCT USED FOR UNKNOWN INDICATION
  4. ENALAPRIL MALEATE [Concomitant]
     Indication: PRODUCT USED FOR UNKNOWN INDICATION
  5. IRON [Concomitant]
     Indication: PRODUCT USED FOR UNKNOWN INDICATION
  6. CARVEDILOL [Concomitant]
     Indication: PRODUCT USED FOR UNKNOWN INDICATION
  7. PHENTAMINE [Concomitant]
     Indication: PRODUCT USED FOR UNKNOWN INDICATION

REACTIONS (7)
  - PARAESTHESIA [None]
  - NASAL OEDEMA [None]
  - LIP SWELLING [None]
  - RASH [None]
  - PRURITUS [None]
  - ERYTHEMA [None]
  - HYPERSENSITIVITY [None]
